FAERS Safety Report 6027956-8 (Version None)
Quarter: 2009Q1

REPORT INFORMATION
  Report Type: 
  Country: None (occurrence: None)
  Receive Date: 20090105
  Receipt Date: 20081231
  Transmission Date: 20090719
  Serious: Yes (Death, Hospitalization)
  Sender: FDA-Public Use
  Company Number: US-GILEAD-2008-0019173

PATIENT
  Age: 62 Year
  Sex: Male
  Weight: 64.014 kg

DRUGS (4)
  1. TRUVADA [Suspect]
     Route: 048
     Dates: start: 20080317
  2. ATAZANAVIR [Suspect]
     Route: 048
     Dates: start: 20071002, end: 20081115
  3. RITONAVIR [Suspect]
     Route: 048
     Dates: start: 20071002, end: 20081115
  4. TRUVADA [Suspect]
     Route: 048
     Dates: start: 20071002, end: 20080317

REACTIONS (1)
  - CARDIO-RESPIRATORY ARREST [None]
